FAERS Safety Report 9604205 (Version 1)
Quarter: 2013Q4

REPORT INFORMATION
  Report Type: Spontaneous
  Country: US (occurrence: US)
  Receive Date: 20131008
  Receipt Date: 20131008
  Transmission Date: 20140711
  Serious: Yes (Other)
  Sender: FDA-Public Use
  Company Number: US-SA-2013SA097080

PATIENT
  Sex: Female

DRUGS (2)
  1. LANTUS SOLOSTAR [Suspect]
     Dosage: SHE TAKES 69-71 UNITS PER NIGHT.
     Route: 051
  2. SOLOSTAR [Concomitant]

REACTIONS (4)
  - Upper limb fracture [Unknown]
  - Abscess [Unknown]
  - Decreased appetite [Unknown]
  - Blood glucose increased [Unknown]
